FAERS Safety Report 4355490-X (Version None)
Quarter: 2004Q2

REPORT INFORMATION
  Report Type: 
  Country: None (occurrence: None)
  Receive Date: 20040503
  Receipt Date: 20040427
  Transmission Date: 20050107
  Serious: Yes (Death)
  Sender: FDA-Public Use
  Company Number: ENT 2004-0080(1)

PATIENT
  Sex: Male

DRUGS (1)
  1. COMTAN [Suspect]
     Dosage: ORAL
     Route: 048

REACTIONS (2)
  - DEATH [None]
  - DYSPHAGIA [None]
